FAERS Safety Report 9477511 (Version 1)
Quarter: 2013Q3

REPORT INFORMATION
  Report Type: Spontaneous
  Country: US (occurrence: US)
  Receive Date: 20130827
  Receipt Date: 20130827
  Transmission Date: 20140515
  Serious: Yes (Other)
  Sender: FDA-Public Use
  Company Number: US-009507513-1308USA006510

PATIENT
  Sex: Female

DRUGS (2)
  1. DULERA [Suspect]
     Indication: CHEST DISCOMFORT
     Route: 055
  2. DULERA [Suspect]
     Indication: DYSPNOEA

REACTIONS (4)
  - Aphonia [Unknown]
  - Heart rate increased [Unknown]
  - Sinus disorder [Unknown]
  - Nervousness [Unknown]
